FAERS Safety Report 19842645 (Version 1)
Quarter: 2021Q3

REPORT INFORMATION
  Report Type: Report from Study
  Country: DE (occurrence: DE)
  Receive Date: 20210915
  Receipt Date: 20210915
  Transmission Date: 20211014
  Serious: Yes (Death, Other)
  Sender: FDA-Public Use
  Company Number: DE-JNJFOC-20210913253

PATIENT
  Age: 66 Year
  Sex: Female
  Weight: 72 kg

DRUGS (22)
  1. SELEXIPAG [Suspect]
     Active Substance: SELEXIPAG
     Indication: PULMONARY ARTERIAL HYPERTENSION
     Route: 048
     Dates: start: 20210326
  2. OXYGEN. [Concomitant]
     Active Substance: OXYGEN
     Indication: DYSPNOEA
  3. FERROSANOL [Concomitant]
     Active Substance: FERROUS GLUCONATE
     Indication: IRON DEFICIENCY
     Route: 048
  4. MARCUMAR [Concomitant]
     Active Substance: PHENPROCOUMON
     Indication: COAGULOPATHY
     Route: 048
  5. MAGNESIUM [Concomitant]
     Active Substance: MAGNESIUM
     Indication: MAGNESIUM DEFICIENCY
     Route: 048
  6. VITAMIN D [ERGOCALCIFEROL] [Concomitant]
     Active Substance: ERGOCALCIFEROL
     Indication: VITAMIN D DEFICIENCY
     Route: 048
  7. INSULIN [Concomitant]
     Active Substance: INSULIN NOS
     Indication: TYPE 1 DIABETES MELLITUS
     Route: 058
  8. FERROSANOL [Concomitant]
     Active Substance: FERROUS GLUCONATE
     Indication: FOLATE DEFICIENCY
  9. BROMAZEPAM [Concomitant]
     Active Substance: BROMAZEPAM
     Indication: SEDATION
     Route: 048
  10. TOREM [TORASEMIDE] [Concomitant]
     Active Substance: TORSEMIDE
     Indication: POLYURIA
     Route: 048
  11. OPIPRAMOL [Concomitant]
     Active Substance: OPIPRAMOL
     Indication: DEPRESSION
     Route: 048
  12. METFORMIN [Concomitant]
     Active Substance: METFORMIN HYDROCHLORIDE
     Indication: DIABETES MELLITUS
     Route: 048
  13. XIPAMID [Concomitant]
     Active Substance: XIPAMIDE
     Indication: POLYURIA
     Route: 048
  14. SELEXIPAG [Suspect]
     Active Substance: SELEXIPAG
     Route: 048
     Dates: start: 20210327
  15. SELEXIPAG [Suspect]
     Active Substance: SELEXIPAG
     Route: 048
     Dates: start: 20210411, end: 20210505
  16. SILDENAFIL. [Concomitant]
     Active Substance: SILDENAFIL
     Indication: PULMONARY ARTERIAL HYPERTENSION
     Route: 048
     Dates: start: 201703
  17. SITAGLIPTIN [Concomitant]
     Active Substance: SITAGLIPTIN
     Indication: DIABETES MELLITUS
     Route: 048
  18. KALINOR [POTASSIUM CHLORIDE] [Concomitant]
     Active Substance: POTASSIUM CHLORIDE
     Indication: HYPOKALAEMIA
     Route: 048
  19. ORTOTON [METHOCARBAMOL] [Concomitant]
     Active Substance: METHOCARBAMOL
     Indication: MUSCLE TIGHTNESS
     Route: 048
  20. SELEXIPAG [Suspect]
     Active Substance: SELEXIPAG
     Route: 048
     Dates: start: 20210402
  21. MACITENTAN [Suspect]
     Active Substance: MACITENTAN
     Indication: PULMONARY ARTERIAL HYPERTENSION
     Route: 048
     Dates: start: 201705
  22. SPIRONOLACTON [Concomitant]
     Active Substance: SPIRONOLACTONE
     Indication: POLYURIA
     Route: 048

REACTIONS (7)
  - Bronchial carcinoma [Unknown]
  - Decreased appetite [Unknown]
  - Right ventricular failure [Fatal]
  - Nausea [Unknown]
  - Weight decreased [Unknown]
  - Cardiorenal syndrome [Fatal]
  - Diarrhoea [Unknown]

NARRATIVE: CASE EVENT DATE: 20210326
